FAERS Safety Report 18357688 (Version 7)
Quarter: 2023Q2

REPORT INFORMATION
  Report Type: Other
  Country: CA (occurrence: None)
  Receive Date: 20201008
  Receipt Date: 20230526
  Transmission Date: 20230721
  Serious: Yes (Hospitalization, Other)
  Sender: FDA-Public Use
  Company Number: CA-ROCHE-2368367

PATIENT
  Age: 68 Year
  Sex: Female

DRUGS (20)
  1. ACTEMRA [Suspect]
     Active Substance: TOCILIZUMAB
     Indication: Rheumatoid arthritis
     Dosage: NO PIRS RECEIVED
     Route: 042
     Dates: start: 20190327, end: 20200306
  2. ACTEMRA [Suspect]
     Active Substance: TOCILIZUMAB
     Route: 042
     Dates: start: 20200930, end: 20220622
  3. ACTEMRA [Suspect]
     Active Substance: TOCILIZUMAB
     Route: 042
     Dates: start: 20220805, end: 20230116
  4. ACTEMRA [Suspect]
     Active Substance: TOCILIZUMAB
     Route: 042
     Dates: start: 20230214
  5. DULOXETINE [Concomitant]
     Active Substance: DULOXETINE
  6. GLICLAZIDE [Concomitant]
     Active Substance: GLICLAZIDE
     Dates: start: 202110
  7. GLUMETZA [Concomitant]
     Active Substance: METFORMIN HYDROCHLORIDE
  8. METOPROLOL [Concomitant]
     Active Substance: METOPROLOL
  9. PANTOPRAZOLE [Concomitant]
     Active Substance: PANTOPRAZOLE
  10. RAMIPRIL [Concomitant]
     Active Substance: RAMIPRIL
     Dates: start: 202110
  11. ATORVASTATIN [Concomitant]
     Active Substance: ATORVASTATIN
  12. BUTRANS [Concomitant]
     Active Substance: BUPRENORPHINE
  13. ELIQUIS [Concomitant]
     Active Substance: APIXABAN
     Dates: start: 202110
  14. INVOKANA [Concomitant]
     Active Substance: CANAGLIFLOZIN
     Dates: start: 202110
  15. LASIX [Concomitant]
     Active Substance: FUROSEMIDE
  16. PERINDOPRIL [Concomitant]
     Active Substance: PERINDOPRIL
     Dates: start: 202110
  17. IRON [Concomitant]
     Active Substance: IRON
  18. METFORMIN [Concomitant]
     Active Substance: METFORMIN HYDROCHLORIDE
  19. NIFEDIPINE [Concomitant]
     Active Substance: NIFEDIPINE
  20. PRAMIPEXOLE [Concomitant]
     Active Substance: PRAMIPEXOLE

REACTIONS (15)
  - Pneumonia [Recovered/Resolved]
  - Viral infection [Unknown]
  - Nasopharyngitis [Unknown]
  - Off label use [Unknown]
  - Dyspnoea [Recovering/Resolving]
  - Anxiety [Recovering/Resolving]
  - Cardiac failure [Recovering/Resolving]
  - Atrial fibrillation [Unknown]
  - Cataract [Unknown]
  - Panic reaction [Recovering/Resolving]
  - Blood pressure systolic abnormal [Unknown]
  - Cardiac failure congestive [Unknown]
  - Heart rate decreased [Unknown]
  - Oxygen saturation decreased [Unknown]
  - Blood pressure systolic increased [Unknown]

NARRATIVE: CASE EVENT DATE: 20190717
